FAERS Safety Report 18916454 (Version 1)
Quarter: 2021Q1

REPORT INFORMATION
  Report Type: Spontaneous
  Country: SE (occurrence: SE)
  Receive Date: 20210219
  Receipt Date: 20210219
  Transmission Date: 20210420
  Serious: Yes (Other)
  Sender: FDA-Public Use
  Company Number: SE-LUPIN PHARMACEUTICALS INC.-2021-02280

PATIENT
  Sex: Male
  Weight: 4138 kg

DRUGS (3)
  1. IRON [Suspect]
     Active Substance: IRON
     Indication: BLOOD IRON DECREASED
     Dosage: UNK
     Route: 064
  2. INSULIN [Suspect]
     Active Substance: INSULIN NOS
     Indication: GESTATIONAL DIABETES
     Dosage: UNK
     Route: 064
  3. METFORMIN [Suspect]
     Active Substance: METFORMIN HYDROCHLORIDE
     Indication: GESTATIONAL DIABETES
     Dosage: UNK
     Route: 064

REACTIONS (9)
  - Hypotonia [Recovered/Resolved]
  - Septic shock [Recovered/Resolved]
  - Hypopnoea [Recovered/Resolved]
  - Shock [Recovered/Resolved]
  - Pallor [Recovered/Resolved]
  - Hypovolaemic shock [Recovered/Resolved]
  - Foetal exposure during pregnancy [Unknown]
  - Skin discolouration [Recovered/Resolved]
  - Metabolic acidosis [Recovered/Resolved]
